FAERS Safety Report 8501002-6 (Version None)
Quarter: 2012Q3

REPORT INFORMATION
  Report Type: 
  Country: None (occurrence: None)
  Receive Date: 20120710
  Receipt Date: 20120628
  Transmission Date: 20120928
  Serious: Yes (Other)
  Sender: FDA-Public Use
  Company Number: JP-NAPPMUNDI-MAG-2012-0002186

PATIENT
  Age: 46 Year
  Sex: Male

DRUGS (9)
  1. CEFOZOPRAN HYDROCHLORIDE [Concomitant]
     Dosage: 3 G, DAILY
  2. OXYCODONE HCL [Interacting]
     Dosage: 60 MG, DAILY
     Route: 048
  3. VORICONAZOLE [Interacting]
     Indication: PRODUCT USED FOR UNKNOWN INDICATION
     Dosage: 150 MG, DAILY
     Route: 048
  4. OXYCODONE HCL [Interacting]
     Dosage: 40 MG, DAILY
     Route: 048
  5. BETAMETHASONE [Concomitant]
     Dosage: 0.5 MG, DAILY
  6. OMEPRAZOLE [Concomitant]
     Dosage: 20 MG, DAILY
  7. OXYCODONE HCL [Suspect]
     Indication: CANCER PAIN
     Dosage: 60 MG, DAILY
     Route: 048
  8. MEROPENEM [Concomitant]
     Dosage: 1.5 G, DAILY
  9. LORNOXICAM [Concomitant]
     Dosage: 12 MG, DAILY

REACTIONS (6)
  - DRUG INTERACTION [None]
  - OXYGEN SATURATION DECREASED [None]
  - DELIRIUM [None]
  - SOMNOLENCE [None]
  - DISORIENTATION [None]
  - MIOSIS [None]
